FAERS Safety Report 4496128-0 (Version None)
Quarter: 2004Q4

REPORT INFORMATION
  Report Type: 
  Country: None (occurrence: None)
  Receive Date: 20041108
  Receipt Date: 20041101
  Transmission Date: 20050328
  Serious: Yes (Life-Threatening, Hospitalization, Disabling)
  Sender: FDA-Public Use
  Company Number: US-MERCK-0411USA00212

PATIENT
  Age: 51 Year
  Sex: Female

DRUGS (4)
  1. VIOXX [Suspect]
     Indication: PAIN
     Route: 048
     Dates: start: 19990101, end: 19990101
  2. CELEXA [Concomitant]
     Route: 065
  3. DYNACIRC [Concomitant]
     Route: 065
  4. ZOCOR [Concomitant]
     Route: 048

REACTIONS (2)
  - DIFFICULTY IN WALKING [None]
  - THROMBOSIS [None]
